FAERS Safety Report 18106614 (Version 1)
Quarter: 2020Q3

REPORT INFORMATION
  Report Type: Report from Study
  Country: US (occurrence: US)
  Receive Date: 20200804
  Receipt Date: 20200804
  Transmission Date: 20201103
  Serious: Yes (Hospitalization)
  Sender: FDA-Public Use
  Company Number: US-GILEAD-2020-0471371

PATIENT
  Age: 56 Year
  Sex: Female

DRUGS (23)
  1. RETIN?A [Concomitant]
     Active Substance: TRETINOIN
  2. CIPRO [Concomitant]
     Active Substance: CIPROFLOXACIN HYDROCHLORIDE
  3. SODIUM CHLORIDE. [Concomitant]
     Active Substance: SODIUM CHLORIDE
  4. ESTRACE [Concomitant]
     Active Substance: ESTRADIOL
  5. PEPCID [Concomitant]
     Active Substance: FAMOTIDINE
  6. PREDNISONE. [Concomitant]
     Active Substance: PREDNISONE
  7. CALCIUM [Concomitant]
     Active Substance: CALCIUM
  8. CLARITINE [Concomitant]
     Active Substance: LORATADINE
  9. NOXAFIL [Concomitant]
     Active Substance: POSACONAZOLE
  10. CROMOLYN [CROMOGLICIC ACID] [Concomitant]
     Active Substance: CROMOLYN
  11. FOSAMAX [Concomitant]
     Active Substance: ALENDRONATE SODIUM
  12. ALBUTEROL [SALBUTAMOL] [Concomitant]
     Active Substance: ALBUTEROL
  13. METRONIDAZOLE. [Concomitant]
     Active Substance: METRONIDAZOLE
  14. AZTREONAM LYSINE [Suspect]
     Active Substance: AZTREONAM LYSINE
     Indication: PRODUCT USED FOR UNKNOWN INDICATION
     Dosage: 75 MG, TID, QOM
     Route: 055
     Dates: start: 202006
  15. XOPENEX [Concomitant]
     Active Substance: LEVALBUTEROL HYDROCHLORIDE
  16. EPIPEN [Concomitant]
     Active Substance: EPINEPHRINE
  17. FLOVENT [Concomitant]
     Active Substance: FLUTICASONE PROPIONATE
  18. VITAMIN C [Concomitant]
     Active Substance: ASCORBIC ACID
  19. ERYTHROMYCIN. [Concomitant]
     Active Substance: ERYTHROMYCIN
  20. FLONASE [MOMETASONE FUROATE] [Concomitant]
     Active Substance: MOMETASONE FUROATE
  21. DOXYCYCLINE HYCLATE. [Concomitant]
     Active Substance: DOXYCYCLINE HYCLATE
  22. PULMOZYME [Concomitant]
     Active Substance: DORNASE ALFA
  23. VITAMIN D [VITAMIN D NOS] [Concomitant]
     Active Substance: VITAMIN D NOS

REACTIONS (5)
  - Off label use [Not Recovered/Not Resolved]
  - Asthma [Unknown]
  - Haemoptysis [Unknown]
  - Seasonal allergy [Unknown]
  - Intentional dose omission [Not Recovered/Not Resolved]

NARRATIVE: CASE EVENT DATE: 20200610
